FAERS Safety Report 7124643-X (Version None)
Quarter: 2010Q4

REPORT INFORMATION
  Report Type: 
  Country: None (occurrence: None)
  Receive Date: 20101122
  Receipt Date: 20101122
  Transmission Date: 20110411
  Serious: Yes (Other)
  Sender: FDA-Public Use
  Company Number: None

PATIENT
  Age: 57 Year
  Sex: Female
  Weight: 87.9978 kg

DRUGS (1)
  1. PROPOXYPHENE NAPSYLATE AND ACETAMINOPHEN [Suspect]
     Indication: ANKYLOSING SPONDYLITIS
     Dosage: TABS 2 Q4 HRS PO  }5 YEARS TO PRESENT
     Route: 048

REACTIONS (2)
  - PALPITATIONS [None]
  - SYNCOPE [None]
